FAERS Safety Report 26032293 (Version 1)
Quarter: 2025Q4

REPORT INFORMATION
  Report Type: Report from Study
  Country: EU (occurrence: EU)
  Receive Date: 20251112
  Receipt Date: 20251112
  Transmission Date: 20260118
  Serious: Yes (Hospitalization)
  Sender: AMGEN
  Company Number: EU-AMGEN-IRLSL2025220800

PATIENT
  Age: 68 Year
  Sex: Female

DRUGS (2)
  1. NEULASTA [Suspect]
     Active Substance: PEGFILGRASTIM
     Indication: Product used for unknown indication
     Dosage: 6 MILLIGRAM, AS PER PRESCRIPTION
     Route: 058
     Dates: start: 2021
  2. NEULASTA [Suspect]
     Active Substance: PEGFILGRASTIM
     Dosage: 6 MILLIGRAM, AS PER PRESCRIPTION
     Route: 058
     Dates: start: 20251016

REACTIONS (1)
  - Infection [Unknown]

NARRATIVE: CASE EVENT DATE: 20251104
